FAERS Safety Report 7590432-5 (Version None)
Quarter: 2011Q3

REPORT INFORMATION
  Report Type: 
  Country: None (occurrence: None)
  Receive Date: 20110705
  Receipt Date: 20110627
  Transmission Date: 20111222
  Serious: Yes (Death, Other)
  Sender: FDA-Public Use
  Company Number: AR-GENZYME-CLOF-1001562

PATIENT
  Sex: Male
  Weight: 39 kg

DRUGS (4)
  1. CLOLAR [Suspect]
     Dosage: 1250 MG/DAY, QDX5 EVERY 28 DAYS
     Route: 065
  2. CYTARABINE [Suspect]
     Dosage: UNK
     Route: 065
  3. CYTARABINE [Suspect]
     Indication: ACUTE LYMPHOCYTIC LEUKAEMIA
     Dosage: 1 G/M2, QDX5
     Route: 065
  4. CLOLAR [Suspect]
     Indication: ACUTE LYMPHOCYTIC LEUKAEMIA
     Dosage: 1250 MG/DAY, QDX5 EVERY 28 DAYS
     Route: 065

REACTIONS (3)
  - CHEMOTHERAPY MULTIPLE AGENTS SYSTEMIC [None]
  - RENAL FAILURE ACUTE [None]
  - PULMONARY OEDEMA [None]
